FAERS Safety Report 7078551-3 (Version None)
Quarter: 2010Q4

REPORT INFORMATION
  Report Type: 
  Country: None (occurrence: None)
  Receive Date: 20101101
  Receipt Date: 20101101
  Transmission Date: 20110411
  Serious: Yes (Other)
  Sender: FDA-Public Use
  Company Number: None

PATIENT
  Age: 58 Year
  Sex: Male
  Weight: 70.3075 kg

DRUGS (2)
  1. SIMVASTATIN [Suspect]
     Indication: BLOOD CHOLESTEROL INCREASED
     Dosage: 20MG ONCE DAILY PO
     Route: 048
     Dates: start: 20100920, end: 20101025
  2. SIMVASTATIN [Suspect]
     Indication: CORONARY ARTERY DISEASE
     Dosage: 20MG ONCE DAILY PO
     Route: 048
     Dates: start: 20100920, end: 20101025

REACTIONS (8)
  - ANXIETY [None]
  - CONSTIPATION [None]
  - DEPRESSION [None]
  - ERECTILE DYSFUNCTION [None]
  - LOSS OF LIBIDO [None]
  - NEUROGENIC BLADDER [None]
  - POLLAKIURIA [None]
  - POOR QUALITY SLEEP [None]
